FAERS Safety Report 20578102 (Version 3)
Quarter: 2022Q2

REPORT INFORMATION
  Report Type: Report from Study
  Country: FR (occurrence: FR)
  Receive Date: 20220310
  Receipt Date: 20220612
  Transmission Date: 20220720
  Serious: Yes (Other)
  Sender: FDA-Public Use
  Company Number: FR-JNJFOC-20220244583

PATIENT

DRUGS (3)
  1. REMICADE [Suspect]
     Active Substance: INFLIXIMAB
     Indication: Uveitis
     Dosage: AT WEEK 0, 2, 6 AND EVERY 4-6 WEEKS
  2. ADALIMUMAB [Suspect]
     Active Substance: ADALIMUMAB
     Indication: Uveitis
     Route: 058
  3. ADALIMUMAB [Suspect]
     Active Substance: ADALIMUMAB
     Route: 058

REACTIONS (25)
  - Cholecystitis [Unknown]
  - Basedow^s disease [Unknown]
  - Chronic inflammatory demyelinating polyradiculoneuropathy [Unknown]
  - Lymphoma [Unknown]
  - Pneumonia [Unknown]
  - Pyelonephritis [Unknown]
  - Tuberculosis [Unknown]
  - Meningitis [Unknown]
  - Sepsis [Unknown]
  - Arthritis bacterial [Unknown]
  - Fungal oesophagitis [Unknown]
  - Hepatitis [Unknown]
  - Anal abscess [Unknown]
  - Cervical dysplasia [Unknown]
  - Paraesthesia [Unknown]
  - Injection site reaction [Unknown]
  - Furuncle [Unknown]
  - Herpes virus infection [Unknown]
  - Psoriasis [Unknown]
  - Bronchitis [Unknown]
  - Viral infection [Unknown]
  - Hypersensitivity [Unknown]
  - Arthralgia [Unknown]
  - Product use in unapproved indication [Unknown]
  - Off label use [Unknown]
